FAERS Safety Report 8603387-9 (Version None)
Quarter: 2012Q3

REPORT INFORMATION
  Report Type: 
  Country: None (occurrence: None)
  Receive Date: 20120817
  Receipt Date: 20120815
  Transmission Date: 20120928
  Serious: No
  Sender: FDA-Public Use
  Company Number: US-PFIZER INC-2012200955

PATIENT
  Age: 80 Year
  Sex: Female
  Weight: 68.027 kg

DRUGS (4)
  1. LIPITOR [Suspect]
     Indication: BLOOD CHOLESTEROL INCREASED
     Dosage: 70 MG, DAILY
  2. ATORVASTATIN CALCIUM [Suspect]
     Indication: BLOOD CHOLESTEROL INCREASED
     Dosage: 70 MG, DAILY
  3. SYNTHROID [Concomitant]
     Indication: THYROID DISORDER
     Dosage: 88 UG, DAILY
  4. PROLIA [Concomitant]
     Indication: OSTEOPOROSIS
     Dosage: UNK

REACTIONS (1)
  - MEMORY IMPAIRMENT [None]
